FAERS Safety Report 15623501 (Version 8)
Quarter: 2019Q1

REPORT INFORMATION
  Report Type: Report from Study
  Country: CA (occurrence: CA)
  Receive Date: 20181115
  Receipt Date: 20190312
  Transmission Date: 20190417
  Serious: Yes (Disabling)
  Sender: FDA-Public Use
  Company Number: CA-ACTELION-A-NJ2018-181410

PATIENT
  Age: 75 Year
  Sex: Female

DRUGS (17)
  1. UPTRAVI [Suspect]
     Active Substance: SELEXIPAG
     Indication: PULMONARY ARTERIAL HYPERTENSION
     Dosage: 400 MCG, UNK
     Route: 048
  2. UPTRAVI [Suspect]
     Active Substance: SELEXIPAG
     Dosage: 200 MCG, BID
     Route: 048
     Dates: start: 20181126
  3. OPSUMIT [Suspect]
     Active Substance: MACITENTAN
     Indication: PULMONARY ARTERIAL HYPERTENSION
     Dosage: 10 MG, UNK
     Route: 048
  4. UPTRAVI [Suspect]
     Active Substance: SELEXIPAG
     Dosage: 600 MCG, BID
     Route: 048
  5. EZETROL [Concomitant]
     Active Substance: EZETIMIBE
  6. SULFASALAZINE. [Concomitant]
     Active Substance: SULFASALAZINE
  7. SYNTHROID [Concomitant]
     Active Substance: LEVOTHYROXINE SODIUM
  8. UPTRAVI [Suspect]
     Active Substance: SELEXIPAG
     Dosage: 400 MCG, BID
     Route: 048
     Dates: start: 20181029
  9. UPTRAVI [Suspect]
     Active Substance: SELEXIPAG
     Dosage: 200 MCG, BID
     Route: 048
     Dates: start: 20181029
  10. ASA [Concomitant]
     Active Substance: ASPIRIN
  11. PROLEAK [Concomitant]
  12. ADCIRCA [Concomitant]
     Active Substance: TADALAFIL
  13. SPIRONOLACTONE. [Concomitant]
     Active Substance: SPIRONOLACTONE
  14. LANSOPRAZOLE. [Concomitant]
     Active Substance: LANSOPRAZOLE
  15. FUROSEMIDE. [Concomitant]
     Active Substance: FUROSEMIDE
  16. CRESTOR [Concomitant]
     Active Substance: ROSUVASTATIN CALCIUM
  17. PROLIA [Concomitant]
     Active Substance: DENOSUMAB

REACTIONS (10)
  - Feeling abnormal [Recovering/Resolving]
  - Facial pain [Recovering/Resolving]
  - Nausea [Not Recovered/Not Resolved]
  - Dyspepsia [Not Recovered/Not Resolved]
  - Influenza like illness [Recovering/Resolving]
  - Pain [Recovering/Resolving]
  - Diarrhoea [Recovered/Resolved]
  - Headache [Recovering/Resolving]
  - Insomnia [Recovered/Resolved]
  - Gastroenteritis viral [Not Recovered/Not Resolved]

NARRATIVE: CASE EVENT DATE: 20181031
